FAERS Safety Report 24110300 (Version 7)
Quarter: 2024Q4

REPORT INFORMATION
  Report Type: Spontaneous
  Country: IT (occurrence: IT)
  Receive Date: 20240718
  Receipt Date: 20241206
  Transmission Date: 20250115
  Serious: Yes (Congenital Anomaly, Other)
  Sender: CELLTRION
  Company Number: IT-CELLTRION INC.-2024IT002948

PATIENT

DRUGS (27)
  1. TRASTUZUMAB [Suspect]
     Active Substance: TRASTUZUMAB
     Indication: HER2 positive breast cancer
     Dosage: 416 MILLIGRAM, Q3WK INTRAVENOUS (NOT OTHERWISE SPECIFIED)(MOST RECENT DOSE PRIOR TO THE EVENT: 27/OC
     Route: 042
     Dates: start: 20190104, end: 20190104
  2. TRASTUZUMAB [Suspect]
     Active Substance: TRASTUZUMAB
     Indication: Breast cancer
     Dosage: 6 MILLIGRAM/KILOGRAM, Q3WK/ LAST DOSE ADMINISTERED: 26-AUG-2022, INTRAVENOUS (NOT OTHERWISE SPECIFIE
     Route: 042
     Dates: start: 20190125, end: 20220826
  3. ARIMIDEX [Suspect]
     Active Substance: ANASTROZOLE
     Indication: HER2 positive breast cancer
     Dosage: 1 MG, QD CUMULATIVE DOSE 819 MG (MOST RECENT DOSE PRIOR TO THE EVENT: 27/NOV/2021)
     Route: 048
     Dates: start: 20190628, end: 20210923
  4. ARIMIDEX [Suspect]
     Active Substance: ANASTROZOLE
     Indication: Hypertension
  5. ARIMIDEX [Suspect]
     Active Substance: ANASTROZOLE
     Indication: Breast cancer
  6. AROMASIN [Suspect]
     Active Substance: EXEMESTANE
     Indication: HER2 positive breast cancer
     Dosage: 25 MG, QD MOST RECENT DOSE 26/NOV/2021 / 25 MG, QD, CUMULATIVE DOSE 9975 MG, (MOST RECENT DOSE 26/NO
     Route: 048
     Dates: start: 20210924
  7. AROMASIN [Suspect]
     Active Substance: EXEMESTANE
     Indication: Breast cancer
  8. AROMASIN [Suspect]
     Active Substance: EXEMESTANE
     Indication: Breast cancer
  9. ENHERTU [Suspect]
     Active Substance: FAM-TRASTUZUMAB DERUXTECAN-NXKI
     Indication: HER2 positive breast cancer
     Dosage: 270 MG EVERY 3 WEEKS / 270 MG, ONCE EVERY 3 WK
     Route: 040
     Dates: start: 20221006
  10. ENHERTU [Suspect]
     Active Substance: FAM-TRASTUZUMAB DERUXTECAN-NXKI
     Indication: Breast cancer
  11. PERTUZUMAB [Suspect]
     Active Substance: PERTUZUMAB
     Indication: Breast cancer
     Dosage: 840 MG, ONCE EVERY 3 WK
     Route: 065
     Dates: start: 20190104, end: 20190104
  12. PERTUZUMAB [Suspect]
     Active Substance: PERTUZUMAB
     Dosage: 420 MG, ONCE EVERY 3 WK (CUMULATIVE DOSE TO FIRST REACTION: 28560 MG)
     Route: 065
     Dates: start: 20190125
  13. TAXOL [Suspect]
     Active Substance: PACLITAXEL
     Indication: HER2 positive breast cancer
     Dosage: 120 MG, ONCE EVERY 1 WK (CUMULATIVE DOSE TO FIRST REACTION: 3000 MG)
     Route: 042
     Dates: start: 20190104, end: 20190621
  14. TAXOL [Suspect]
     Active Substance: PACLITAXEL
     Indication: Breast cancer
  15. PERJETA [Suspect]
     Active Substance: PERTUZUMAB
     Indication: HER2 positive breast cancer
     Dosage: 420 MG, ONCE EVERY 3 WK
     Route: 042
     Dates: start: 20190125
  16. PERJETA [Suspect]
     Active Substance: PERTUZUMAB
     Dosage: 840 MG, ONCE EVERY 3 WK
     Route: 042
     Dates: start: 20190104, end: 20190104
  17. FAM-TRASTUZUMAB DERUXTECAN-NXKI [Suspect]
     Active Substance: FAM-TRASTUZUMAB DERUXTECAN-NXKI
     Indication: HER2 positive breast cancer
     Dosage: 270 MG EVERY 3 WEEKS
     Route: 042
     Dates: start: 20221006
  18. ANASTROZOLE [Concomitant]
     Active Substance: ANASTROZOLE
     Indication: Hypertension
     Dosage: 1 MG
     Route: 065
     Dates: start: 20211125
  19. CHLORPHENIRAMINE MALEATE [Concomitant]
     Active Substance: CHLORPHENIRAMINE MALEATE
     Indication: Product used for unknown indication
     Dosage: 10 MG, ONCE EVERY 3 WK
     Route: 065
     Dates: start: 20190719
  20. CHLORPHENIRAMINE MALEATE [Concomitant]
     Active Substance: CHLORPHENIRAMINE MALEATE
     Dosage: 10 MG, ONCE EVERY 1 WK
     Route: 065
     Dates: start: 20190104, end: 20190621
  21. GRANISETRONE [Concomitant]
     Indication: Product used for unknown indication
     Dosage: 1 MG, ONCE EVERY 1 WK
     Route: 065
     Dates: start: 20190104, end: 20190621
  22. METHYLPREDNISOLONE [Concomitant]
     Active Substance: METHYLPREDNISOLONE
     Indication: Product used for unknown indication
     Dosage: 125 MG, ONCE EVERY 3 WK
     Route: 065
     Dates: start: 20200508
  23. METOPROLOL [Concomitant]
     Active Substance: METOPROLOL
     Indication: Hypertension
     Dosage: 25 MG, BID
     Route: 065
     Dates: start: 20200829
  24. PANTOPRAZOLE SODIUM [Concomitant]
     Active Substance: PANTOPRAZOLE SODIUM
     Indication: Product used for unknown indication
     Dosage: 20 MG, QD
     Route: 065
  25. LAMIVUDINE [Concomitant]
     Active Substance: LAMIVUDINE
     Indication: Product used for unknown indication
     Dosage: 100 MG, QD
     Route: 065
  26. ZOLEDRONIC ACID [Concomitant]
     Active Substance: ZOLEDRONIC ACID
     Indication: Metastases to bone
     Dosage: 4 MG, ONCE EVERY 3 MO
     Route: 065
  27. ZOLEDRONIC ACID [Concomitant]
     Active Substance: ZOLEDRONIC ACID
     Dosage: 4 MG, ONCE EVERY 1 MO
     Route: 065

REACTIONS (4)
  - Toxicity to various agents [Recovered/Resolved]
  - Eastern Cooperative Oncology Group performance status worsened [Not Recovered/Not Resolved]
  - Asthenia [Recovered/Resolved]
  - Intentional product use issue [Unknown]

NARRATIVE: CASE EVENT DATE: 20221027
